FAERS Safety Report 6709934-6 (Version None)
Quarter: 2010Q2

REPORT INFORMATION
  Report Type: 
  Country: None (occurrence: None)
  Receive Date: 20100503
  Receipt Date: 20100503
  Transmission Date: 20101027
  Serious: No
  Sender: FDA-Public Use
  Company Number: None

PATIENT
  Age: 11 Month
  Sex: Female
  Weight: 10.8863 kg

DRUGS (1)
  1. CONCENTRATED MOTRIN INFANTS DROPS [Suspect]
     Dosage: 1.25ML ONCE PO
     Route: 048

REACTIONS (4)
  - BODY TEMPERATURE DECREASED [None]
  - FEELING COLD [None]
  - LETHARGY [None]
  - PRODUCT QUALITY ISSUE [None]
